FAERS Safety Report 23791834 (Version 3)
Quarter: 2024Q3

REPORT INFORMATION
  Report Type: Spontaneous
  Country: US (occurrence: US)
  Receive Date: 20240429
  Receipt Date: 20240820
  Transmission Date: 20241017
  Serious: No
  Sender: SANOFI AVENTIS
  Company Number: US-SA-SAC20240420000332

PATIENT
  Age: 80 Year
  Sex: Female

DRUGS (17)
  1. DUPIXENT [Suspect]
     Active Substance: DUPILUMAB
     Indication: Dermatitis atopic
     Dosage: 300 MG, QOW
     Route: 058
     Dates: start: 2024
  2. DUPIXENT [Suspect]
     Active Substance: DUPILUMAB
     Indication: Eczema
  3. AZELASTINE [Concomitant]
     Active Substance: AZELASTINE\AZELASTINE HYDROCHLORIDE
     Dosage: 1 SPRAY IN EACH NOSTRIL TWICE DAILY
  4. CLOBETASOL [Concomitant]
     Active Substance: CLOBETASOL
     Dosage: UNK
  5. DILTIAZEM [Concomitant]
     Active Substance: DILTIAZEM
     Dosage: 2 CAPSULES DAILY
  6. DULOXETINE [Concomitant]
     Active Substance: DULOXETINE
     Dosage: 20 MG, QD
  7. ESTRACE [Concomitant]
     Active Substance: ESTRADIOL
     Dosage: .1 MG/GM CREAM INSERTED INTO VAGINA NIGHTLY
  8. FAMOTIDINE [Concomitant]
     Active Substance: FAMOTIDINE
     Dosage: 2 TABLETS TWICE DAILY
  9. GUAIFENESIN [Concomitant]
     Active Substance: GUAIFENESIN
     Dosage: 2 DF (TABLETS), BID
  10. HYDROCODONE BITARTRATE AND ACETAMINOPHEN [Concomitant]
     Active Substance: ACETAMINOPHEN\HYDROCODONE BITARTRATE
     Dosage: APAP 5- 320 MG
  11. ALBUTEROL\IPRATROPIUM [Concomitant]
     Active Substance: ALBUTEROL\IPRATROPIUM
     Indication: Wheezing
     Dosage: 0.5-2.5MG/3 ML ; VIA NEBULIZER AS NEEDED AS NEEDED
  12. METOPROLOL SUCCINATE [Concomitant]
     Active Substance: METOPROLOL SUCCINATE
     Dosage: UNK
  13. MONTELUKAST [Concomitant]
     Active Substance: MONTELUKAST SODIUM
     Dosage: 10 MG NIGHTLY
  14. NYSTATIN [Concomitant]
     Active Substance: NYSTATIN
     Dosage: 100,000 UNITS/GM
     Route: 061
  15. TACROLIMUS [Concomitant]
     Active Substance: TACROLIMUS
     Dosage: UNK
  16. TRELEGY ELLIPTA [Concomitant]
     Active Substance: FLUTICASONE FUROATE\UMECLIDINIUM BROMIDE\VILANTEROL TRIFENATATE
     Dosage: 200-62.5-25 MCG/ACT INHALER ONCE DAILY
  17. VITAMIN D NOS [Concomitant]
     Active Substance: CHOLECALCIFEROL\ERGOCALCIFEROL
     Dosage: 1000 UNIT

REACTIONS (5)
  - Dry skin [Not Recovered/Not Resolved]
  - Pruritus [Not Recovered/Not Resolved]
  - Dermatitis atopic [Not Recovered/Not Resolved]
  - Skin exfoliation [Not Recovered/Not Resolved]
  - Skin fissures [Not Recovered/Not Resolved]

NARRATIVE: CASE EVENT DATE: 20240101
